FAERS Safety Report 18002396 (Version 1)
Quarter: 2020Q3

REPORT INFORMATION
  Report Type: Spontaneous
  Country: JP (occurrence: JP)
  Receive Date: 20200710
  Receipt Date: 20200710
  Transmission Date: 20201103
  Serious: Yes (Other)
  Sender: FDA-Public Use
  Company Number: JP-SUN PHARMACEUTICAL INDUSTRIES LTD-2020R1-252564

PATIENT
  Age: 80 Year
  Sex: Female
  Weight: 52.2 kg

DRUGS (4)
  1. APIXABAN [Concomitant]
     Active Substance: APIXABAN
     Indication: CEREBRAL INFARCTION
     Dosage: UNK
  2. AMANTADINE. [Interacting]
     Active Substance: AMANTADINE HYDROCHLORIDE
     Indication: CEREBRAL INFARCTION
     Dosage: 150 MILLIGRAM, DAILY
  3. DONEPEZIL. [Suspect]
     Active Substance: DONEPEZIL
     Indication: CEREBRAL INFARCTION
     Dosage: 3 MILLIGRAM, DAILY
     Route: 065
  4. DONEPEZIL. [Interacting]
     Active Substance: DONEPEZIL
     Dosage: 5 MILLIGRAM, DAILY
     Route: 065

REACTIONS (2)
  - Toxicity to various agents [Recovering/Resolving]
  - Drug interaction [Unknown]
